FAERS Safety Report 25401166 (Version 2)
Quarter: 2025Q3

REPORT INFORMATION
  Report Type: Spontaneous
  Country: GB (occurrence: GB)
  Receive Date: 20250605
  Receipt Date: 20250715
  Transmission Date: 20251020
  Serious: No
  Sender: PFIZER
  Company Number: GB-PFIZER INC-PV202500065308

PATIENT
  Age: 48 Year
  Sex: Male

DRUGS (1)
  1. GENOTROPIN [Suspect]
     Active Substance: SOMATROPIN
     Dosage: 0.5 MG, DAILY
     Route: 058

REACTIONS (2)
  - Drug dose omission by device [Unknown]
  - Device expulsion [Unknown]
